FAERS Safety Report 4783048-7 (Version None)
Quarter: 2005Q3

REPORT INFORMATION
  Report Type: 
  Country: None (occurrence: None)
  Receive Date: 20050928
  Receipt Date: 20050928
  Transmission Date: 20060218
  Serious: Yes (Other)
  Sender: FDA-Public Use
  Company Number: None

PATIENT
  Age: 84 Year
  Sex: Female

DRUGS (8)
  1. HYDRALAZINE HYDROCHLORIDE TAB [Suspect]
     Indication: BLOOD PRESSURE
     Dosage: 1 BY MOUTH FOUR TIMES A DAY
     Dates: start: 20050815
  2. GLUCOPHAGE XR [Concomitant]
  3. PLAVIX [Concomitant]
  4. PREVACID [Concomitant]
  5. ACCUPRIL [Concomitant]
  6. ACTONEL [Concomitant]
  7. TRAMADOL [Concomitant]
  8. COREG [Concomitant]

REACTIONS (3)
  - DIARRHOEA [None]
  - DIZZINESS [None]
  - PHARMACEUTICAL PRODUCT COMPLAINT [None]
